FAERS Safety Report 6955145-9 (Version None)
Quarter: 2010Q3

REPORT INFORMATION
  Report Type: 
  Country: None (occurrence: None)
  Receive Date: 20100826
  Receipt Date: 20100812
  Transmission Date: 20110219
  Serious: Yes (Other)
  Sender: FDA-Public Use
  Company Number: 1000015830

PATIENT
  Sex: Male

DRUGS (3)
  1. MEMANTINE HCL [Suspect]
     Indication: DEMENTIA ALZHEIMER'S TYPE
     Dosage: 5 MG (5 MG, 1 IN 1 D), ORAL; 10 MG (10 MG, 1 IN 1 D), ORAL; 15 MG (15 MG, 1 IN 1 D), ORAL
     Route: 048
  2. MEMANTINE HCL [Suspect]
     Indication: DEMENTIA ALZHEIMER'S TYPE
     Dosage: 20 MG (20 MG, 1 IN 1 D), ORAL
     Route: 048
  3. MULTIPLE MEDICATIONS NOS [Concomitant]

REACTIONS (3)
  - DELUSION [None]
  - HALLUCINATION [None]
  - UNEVALUABLE EVENT [None]
